FAERS Safety Report 13905094 (Version 1)
Quarter: 2017Q3

REPORT INFORMATION
  Report Type: Report from Study
  Country: None (occurrence: US)
  Receive Date: 20170825
  Receipt Date: 20170825
  Transmission Date: 20171127
  Serious: Yes (Hospitalization)
  Sender: FDA-Public Use
  Company Number: US-ABBVIE-17K-163-1977090-00

PATIENT
  Age: 56 Year
  Sex: Female
  Weight: 102.15 kg

DRUGS (4)
  1. HUMIRA [Suspect]
     Active Substance: ADALIMUMAB
     Indication: PSORIATIC ARTHROPATHY
     Route: 058
     Dates: start: 2012, end: 201701
  2. HUMIRA [Suspect]
     Active Substance: ADALIMUMAB
     Route: 058
     Dates: start: 201702
  3. LORATADINE. [Concomitant]
     Active Substance: LORATADINE
     Indication: HYPERSENSITIVITY
  4. HUMIRA [Suspect]
     Active Substance: ADALIMUMAB
     Indication: PSORIATIC ARTHROPATHY
     Dosage: ONLY USED PEN FOR FOUR DOSES
     Route: 058
     Dates: start: 2012, end: 2012

REACTIONS (17)
  - Musculoskeletal pain [Unknown]
  - Cartilage atrophy [Not Recovered/Not Resolved]
  - Injection site mass [Unknown]
  - Injection site erythema [Unknown]
  - Vitamin B1 deficiency [Not Recovered/Not Resolved]
  - Cartilage atrophy [Recovered/Resolved]
  - Injection site pruritus [Unknown]
  - Musculoskeletal pain [Not Recovered/Not Resolved]
  - Injection site swelling [Recovered/Resolved]
  - Procedural pain [Recovered/Resolved]
  - Injection site pain [Recovered/Resolved]
  - Osteoarthritis [Unknown]
  - Neck pain [Unknown]
  - Arthralgia [Recovered/Resolved]
  - Anxiety [Not Recovered/Not Resolved]
  - Depression [Not Recovered/Not Resolved]
  - Vitamin D deficiency [Not Recovered/Not Resolved]

NARRATIVE: CASE EVENT DATE: 2012
